FAERS Safety Report 7271785-4 (Version None)
Quarter: 2011Q1

REPORT INFORMATION
  Report Type: 
  Country: None (occurrence: None)
  Receive Date: 20110203
  Receipt Date: 20110125
  Transmission Date: 20110831
  Serious: Yes (Other)
  Sender: FDA-Public Use
  Company Number: GB-JNJFOC-20110107302

PATIENT
  Age: 58 Year
  Sex: Male

DRUGS (4)
  1. CISPLATIN [Suspect]
     Indication: THYROID CANCER
     Dosage: CYCLE 2-6
     Route: 042
  2. DOXORUBICIN HYDROCHLORIDE [Suspect]
     Dosage: CYCLE 1
     Route: 042
  3. CISPLATIN [Suspect]
     Dosage: CYCLE 1
     Route: 042
  4. DOXORUBICIN HYDROCHLORIDE [Suspect]
     Indication: THYROID CANCER
     Dosage: CYCLE 2-6
     Route: 042

REACTIONS (5)
  - PLEURAL EFFUSION [None]
  - NEUTROPENIA [None]
  - NAUSEA [None]
  - OFF LABEL USE [None]
  - MALAISE [None]
